FAERS Safety Report 6664509-2 (Version None)
Quarter: 2010Q2

REPORT INFORMATION
  Report Type: 
  Country: None (occurrence: None)
  Receive Date: 20100401
  Receipt Date: 20100401
  Transmission Date: 20101027
  Serious: Yes (Other)
  Sender: FDA-Public Use
  Company Number: GB-PFIZER INC-2009252153

PATIENT
  Age: 2 Year
  Sex: Male
  Weight: 12 kg

DRUGS (3)
  1. VFEND [Suspect]
     Indication: ASPERGILLOSIS
     Dosage: 200 MG, 2X/DAY
     Dates: start: 20090501, end: 20090501
  2. LENOGRASTIM [Concomitant]
     Indication: NEUTROPENIA
     Dosage: 33.6 MILLIONIU, 1X/DAY
     Route: 058
     Dates: start: 20070101, end: 20090101
  3. CASPOFUNGIN [Concomitant]
     Indication: ASPERGILLOSIS
     Dosage: 19 MG, 1X/DAY
     Route: 042
     Dates: start: 20090501, end: 20090701

REACTIONS (2)
  - ERYTHEMA [None]
  - SKIN EXFOLIATION [None]
